FAERS Safety Report 15016072 (Version 2)
Quarter: 2018Q2

REPORT INFORMATION
  Report Type: Spontaneous
  Country: DE (occurrence: DE)
  Receive Date: 20180615
  Receipt Date: 20180620
  Transmission Date: 20180711
  Serious: Yes (Hospitalization, Other)
  Sender: FDA-Public Use
  Company Number: DE-JNJFOC-20180612303

PATIENT
  Age: 77 Year
  Sex: Male

DRUGS (18)
  1. OXAZEPAM. [Concomitant]
     Active Substance: OXAZEPAM
     Dosage: 10-5 MG
     Route: 048
     Dates: start: 20180305, end: 20180311
  2. ENALAPRIL [Concomitant]
     Active Substance: ENALAPRIL
     Route: 048
     Dates: start: 20180201, end: 20180201
  3. RISPERDAL [Suspect]
     Active Substance: RISPERIDONE
     Indication: PRODUCT USED FOR UNKNOWN INDICATION
     Route: 048
     Dates: start: 20180131, end: 20180131
  4. RISPERDAL [Suspect]
     Active Substance: RISPERIDONE
     Indication: PRODUCT USED FOR UNKNOWN INDICATION
     Route: 048
     Dates: start: 20180307, end: 20180311
  5. ENALAPRIL [Concomitant]
     Active Substance: ENALAPRIL
     Route: 048
     Dates: start: 20180202
  6. RISPERDAL [Suspect]
     Active Substance: RISPERIDONE
     Indication: PRODUCT USED FOR UNKNOWN INDICATION
     Route: 048
     Dates: start: 20180214, end: 20180306
  7. SIMVASTATIN. [Concomitant]
     Active Substance: SIMVASTATIN
     Route: 048
     Dates: start: 20180131
  8. OXAZEPAM. [Concomitant]
     Active Substance: OXAZEPAM
     Dosage: 25-30 MG
     Route: 048
     Dates: start: 20180131, end: 20180213
  9. PROTHIPENDYL [Concomitant]
     Active Substance: PROTHIPENDYL
     Route: 048
     Dates: start: 20180213, end: 20180228
  10. OXAZEPAM. [Concomitant]
     Active Substance: OXAZEPAM
     Dosage: 20-15 MG
     Route: 048
     Dates: start: 20180221, end: 20180227
  11. OXAZEPAM. [Concomitant]
     Active Substance: OXAZEPAM
     Route: 048
     Dates: start: 20180228, end: 20180304
  12. RISPERDAL [Suspect]
     Active Substance: RISPERIDONE
     Indication: PRODUCT USED FOR UNKNOWN INDICATION
     Route: 048
     Dates: start: 20180201, end: 20180213
  13. ERGENYL [Interacting]
     Active Substance: VALPROIC ACID
     Indication: PRODUCT USED FOR UNKNOWN INDICATION
     Route: 048
     Dates: start: 20180303
  14. OXAZEPAM. [Concomitant]
     Active Substance: OXAZEPAM
     Route: 048
     Dates: start: 20180214, end: 20180220
  15. FUROSEMIDE. [Concomitant]
     Active Substance: FUROSEMIDE
     Route: 048
     Dates: start: 20180204
  16. AZOPT [Concomitant]
     Active Substance: BRINZOLAMIDE
     Route: 047
     Dates: start: 20180210
  17. PROTHIPENDYL [Concomitant]
     Active Substance: PROTHIPENDYL
     Route: 048
     Dates: start: 20180301
  18. FUROSEMIDE. [Concomitant]
     Active Substance: FUROSEMIDE
     Route: 048
     Dates: start: 20180203, end: 20180203

REACTIONS (2)
  - Pleurothotonus [Recovering/Resolving]
  - Drug interaction [Recovering/Resolving]

NARRATIVE: CASE EVENT DATE: 201803
